FAERS Safety Report 5684677-9 (Version None)
Quarter: 2008Q1

REPORT INFORMATION
  Report Type: 
  Country: None (occurrence: None)
  Receive Date: 20080328
  Receipt Date: 20070605
  Transmission Date: 20080703
  Serious: No
  Sender: FDA-Public Use
  Company Number: US-BRISTOL-MYERS SQUIBB COMPANY-13804026

PATIENT
  Age: 58 Year
  Sex: Male
  Weight: 65 kg

DRUGS (3)
  1. ERBITUX [Suspect]
     Indication: NEOPLASM MALIGNANT
     Route: 042
     Dates: start: 20070523
  2. DIPHENHYDRAMINE HCL [Concomitant]
     Route: 042
  3. ACETAMINOPHEN [Concomitant]
     Route: 048

REACTIONS (1)
  - RASH MACULAR [None]
